FAERS Safety Report 11422063 (Version 1)
Quarter: 2015Q3

REPORT INFORMATION
  Report Type: Spontaneous
  Country: US (occurrence: None)
  Receive Date: 20150826
  Receipt Date: 20150826
  Transmission Date: 20151125
  Serious: No
  Sender: FDA-Public Use
  Company Number: None

PATIENT
  Age: 4 Year
  Sex: Female

DRUGS (2)
  1. BACZOL [Suspect]
     Active Substance: GUAIFENESIN\PHENYLEPHRINE HYDROCHLORIDE
     Indication: NASOPHARYNGITIS
     Dosage: LIQUID
     Route: 048
     Dates: start: 20150822, end: 20150822
  2. BACZOL [Suspect]
     Active Substance: GUAIFENESIN\PHENYLEPHRINE HYDROCHLORIDE
     Indication: APHONIA
     Dosage: LIQUID
     Route: 048
     Dates: start: 20150822, end: 20150822

REACTIONS (2)
  - Acne [None]
  - Rash [None]

NARRATIVE: CASE EVENT DATE: 20150822
